FAERS Safety Report 16989847 (Version 1)
Quarter: 2019Q4

REPORT INFORMATION
  Report Type: Spontaneous
  Country: US (occurrence: US)
  Receive Date: 20190920
  Receipt Date: 20190920
  Transmission Date: 20200122
  Serious: No
  Sender: FDA-Public Use
  Company Number: None

PATIENT
  Age: 73 Year
  Sex: Female

DRUGS (4)
  1. IBRANCE [Suspect]
     Active Substance: PALBOCICLIB
     Indication: BREAST CANCER
     Route: 048
     Dates: start: 20190901
  2. LETRAZOLE [Concomitant]
     Active Substance: LETROZOLE
  3. ALBUTEROL. [Concomitant]
     Active Substance: ALBUTEROL
  4. ZANTAC [Concomitant]
     Active Substance: RANITIDINE HYDROCHLORIDE

REACTIONS (2)
  - Procedural site reaction [None]
  - Skin discolouration [None]

NARRATIVE: CASE EVENT DATE: 20190920
